FAERS Safety Report 22388655 (Version 1)
Quarter: 2023Q2

REPORT INFORMATION
  Report Type: Spontaneous
  Country: US (occurrence: US)
  Receive Date: 20230531
  Receipt Date: 20230531
  Transmission Date: 20230721
  Serious: No
  Sender: FDA-Public Use
  Company Number: US-SEBELA IRELAND LIMITED-2023SEB00016

PATIENT
  Age: 9 Decade
  Sex: Female

DRUGS (3)
  1. LOTRONEX [Suspect]
     Active Substance: ALOSETRON HYDROCHLORIDE
     Indication: Irritable bowel syndrome
     Dosage: UNK
  2. LOTRONEX [Suspect]
     Active Substance: ALOSETRON HYDROCHLORIDE
     Indication: Diarrhoea
     Dosage: 0.5 MG, 2X/DAY
     Dates: end: 20230311
  3. LOTRONEX [Suspect]
     Active Substance: ALOSETRON HYDROCHLORIDE
     Indication: Muscle spasms
     Dosage: 0.5 MG, 4X/DAY
     Dates: start: 20230312

REACTIONS (1)
  - Therapeutic product effect decreased [Not Recovered/Not Resolved]
